FAERS Safety Report 18749349 (Version 1)
Quarter: 2021Q1

REPORT INFORMATION
  Report Type: Spontaneous
  Country: US (occurrence: US)
  Receive Date: 20210116
  Receipt Date: 20210116
  Transmission Date: 20210419
  Serious: Yes (Hospitalization, Other)
  Sender: FDA-Public Use
  Company Number: US-AMGEN-USASP2021003600

PATIENT
  Age: 62 Year
  Sex: Female

DRUGS (2)
  1. IMLYGIC [Suspect]
     Active Substance: TALIMOGENE LAHERPAREPVEC
     Indication: SKIN LESION
     Dosage: UNK
     Route: 026
     Dates: start: 20201228
  2. IPILIMUMAB [Concomitant]
     Active Substance: IPILIMUMAB
     Indication: SKIN LESION
     Dosage: UNK

REACTIONS (2)
  - Meningoencephalitis herpetic [Recovering/Resolving]
  - Rash [Unknown]
